FAERS Safety Report 20213119 (Version 1)
Quarter: 2021Q4

REPORT INFORMATION
  Report Type: Spontaneous
  Country: US (occurrence: US)
  Receive Date: 20211221
  Receipt Date: 20211221
  Transmission Date: 20220303
  Serious: No
  Sender: FDA-Public Use
  Company Number: US-SA-SAC20211216000859

PATIENT
  Age: 59 Year
  Sex: Female

DRUGS (10)
  1. DUPIXENT [Suspect]
     Active Substance: DUPILUMAB
     Indication: Essential hypertension
     Dosage: 300 MG, QOW
     Route: 058
     Dates: start: 20201210
  2. ALBUTEROL [Concomitant]
     Active Substance: ALBUTEROL
  3. ALPRAZOLAM [Concomitant]
     Active Substance: ALPRAZOLAM
  4. CALCIUM [Concomitant]
     Active Substance: CALCIUM
  5. IPRATROPIUM [Concomitant]
     Active Substance: IPRATROPIUM
  6. PREDNISONE [Concomitant]
     Active Substance: PREDNISONE
  7. ROSUVASTATIN [Concomitant]
     Active Substance: ROSUVASTATIN
  8. SINGULAIR [Concomitant]
     Active Substance: MONTELUKAST SODIUM
  9. TIADYLT ER [Concomitant]
     Active Substance: DILTIAZEM HYDROCHLORIDE
  10. VENALIV [Concomitant]

REACTIONS (3)
  - Impaired quality of life [Unknown]
  - Condition aggravated [Unknown]
  - Off label use [Unknown]
